FAERS Safety Report 23470508 (Version 2)
Quarter: 2024Q1

REPORT INFORMATION
  Report Type: Spontaneous
  Country: DE (occurrence: DE)
  Receive Date: 20240202
  Receipt Date: 20240307
  Transmission Date: 20240409
  Serious: Yes (Other)
  Sender: FDA-Public Use
  Company Number: DE-AMGEN-DEUSP2024018060

PATIENT
  Age: 72 Year
  Sex: Female

DRUGS (2)
  1. PROLIA [Suspect]
     Active Substance: DENOSUMAB
     Indication: Osteoporosis
     Dosage: UNK
     Route: 065
     Dates: start: 2011, end: 2018
  2. PROLIA [Suspect]
     Active Substance: DENOSUMAB
     Dosage: RESTARTED
     Route: 065

REACTIONS (5)
  - Lumbar vertebral fracture [Unknown]
  - Alopecia [Unknown]
  - Feeling abnormal [Unknown]
  - Dental prosthesis placement [Unknown]
  - Asthenia [Unknown]

NARRATIVE: CASE EVENT DATE: 20191201
